FAERS Safety Report 16146663 (Version 2)
Quarter: 2019Q2

REPORT INFORMATION
  Report Type: Spontaneous
  Country: US (occurrence: US)
  Receive Date: 20190402
  Receipt Date: 20190510
  Transmission Date: 20190711
  Serious: Yes (Hospitalization)
  Sender: FDA-Public Use
  Company Number: US-BAUSCH-BL-2019-008756

PATIENT
  Age: 23 Year
  Sex: Male

DRUGS (2)
  1. APRISO [Suspect]
     Active Substance: MESALAMINE
     Indication: COLITIS ULCERATIVE
     Route: 065
  2. APRISO [Suspect]
     Active Substance: MESALAMINE
     Indication: CROHN^S DISEASE

REACTIONS (9)
  - Colitis ulcerative [Unknown]
  - Therapeutic response unexpected [Unknown]
  - Stress [Not Recovered/Not Resolved]
  - Insurance issue [Unknown]
  - Weight decreased [Unknown]
  - Inability to afford medication [Unknown]
  - Therapy cessation [Unknown]
  - Crohn^s disease [Unknown]
  - General physical health deterioration [Unknown]
